FAERS Safety Report 8137458-0 (Version None)
Quarter: 2012Q1

REPORT INFORMATION
  Report Type: 
  Country: None (occurrence: None)
  Receive Date: 20120215
  Receipt Date: 20120207
  Transmission Date: 20120608
  Serious: Yes (Hospitalization)
  Sender: FDA-Public Use
  Company Number: IT-TEVA-321995ISR

PATIENT
  Sex: Female

DRUGS (1)
  1. SERTRALINA [Suspect]

REACTIONS (6)
  - EPISTAXIS [None]
  - HYPERKALAEMIA [None]
  - DEHYDRATION [None]
  - OLIGURIA [None]
  - DECREASED APPETITE [None]
  - LETHARGY [None]
